FAERS Safety Report 4823397-7 (Version None)
Quarter: 2005Q4

REPORT INFORMATION
  Report Type: 
  Country: None (occurrence: None)
  Receive Date: 20051107
  Receipt Date: 20051020
  Transmission Date: 20060501
  Serious: Yes (Death)
  Sender: FDA-Public Use
  Company Number: DSA_27311_2005

PATIENT
  Age: 71 Year
  Sex: Male

DRUGS (8)
  1. ENALAPRIL MALEATE [Suspect]
     Dosage: 2.5 MG PO
     Route: 048
     Dates: start: 20040804, end: 20040806
  2. ASPIRIN [Concomitant]
  3. ATENOLOL [Concomitant]
  4. ATORVASTATIN CALCIUM [Concomitant]
  5. CANDESARTAN [Concomitant]
  6. DOXAZOSIN MESYLATE [Concomitant]
  7. FUROSEMIDE [Concomitant]
  8. LANSOPRAZOLE [Concomitant]

REACTIONS (1)
  - ANGIONEUROTIC OEDEMA [None]
